FAERS Safety Report 5284452-3 (Version None)
Quarter: 2007Q1

REPORT INFORMATION
  Report Type: 
  Country: None (occurrence: None)
  Receive Date: 20061227
  Receipt Date: 20060828
  Transmission Date: 20070707
  Serious: Yes (Other)
  Sender: FDA-Public Use
  Company Number: 13491170

PATIENT
  Age: 42 Year
  Sex: Female

DRUGS (2)
  1. EMSAM [Suspect]
     Indication: DEPRESSION
     Dosage: 6 MILLIGRAM, 1/24 HOUR TD
     Route: 062
  2. METHADONE HCL [Suspect]

REACTIONS (1)
  - BLOOD PRESSURE DECREASED [None]
